FAERS Safety Report 8054814-X (Version None)
Quarter: 2012Q1

REPORT INFORMATION
  Report Type: 
  Country: None (occurrence: None)
  Receive Date: 20120119
  Receipt Date: 20120110
  Transmission Date: 20120608
  Serious: Yes (Death)
  Sender: FDA-Public Use
  Company Number: GB-JNJFOC-20120103140

PATIENT
  Sex: Male
  Weight: 112 kg

DRUGS (11)
  1. FUROSEMIDE [Concomitant]
  2. OTHER BIOLOGICS [Concomitant]
     Indication: RHEUMATOID ARTHRITIS
  3. CYCLIZINE [Concomitant]
  4. REMICADE [Suspect]
     Indication: RHEUMATOID ARTHRITIS
     Route: 042
     Dates: start: 20030715, end: 20031015
  5. DULOXETIME HYDROCHLORIDE [Concomitant]
  6. FOLIC ACID [Concomitant]
  7. DUTASTERIDE [Concomitant]
  8. OMEPRAZOLE [Concomitant]
  9. METHOTREXATE [Concomitant]
  10. PREDNISONE [Concomitant]
  11. FLUTICASONE PROPIONATE/SALMETEROL [Concomitant]

REACTIONS (1)
  - PANCREATIC CARCINOMA [None]
